FAERS Safety Report 4719260-2 (Version None)
Quarter: 2005Q3

REPORT INFORMATION
  Report Type: 
  Country: None (occurrence: None)
  Receive Date: 20050719
  Receipt Date: 20050719
  Transmission Date: 20060218
  Serious: Yes (Other)
  Sender: FDA-Public Use
  Company Number: None

PATIENT
  Age: 46 Year
  Sex: Female
  Weight: 76.2043 kg

DRUGS (1)
  1. TOPAMAX [Suspect]
     Indication: MIGRAINE
     Dosage: 75 MG QHS ORAL
     Route: 048
     Dates: start: 20050515, end: 20050718

REACTIONS (4)
  - DRUG INEFFECTIVE [None]
  - DRY EYE [None]
  - VISION BLURRED [None]
  - VISUAL DISTURBANCE [None]
